FAERS Safety Report 18320818 (Version 2)
Quarter: 2020Q4

REPORT INFORMATION
  Report Type: Spontaneous
  Country: US (occurrence: US)
  Receive Date: 20200929
  Receipt Date: 20201125
  Transmission Date: 20210113
  Serious: Yes (Other)
  Sender: FDA-Public Use
  Company Number: US-REGENERON PHARMACEUTICALS, INC.-2020-78120

PATIENT

DRUGS (1)
  1. PRALUENT [Suspect]
     Active Substance: ALIROCUMAB
     Indication: HYPERCHOLESTEROLAEMIA
     Dosage: 75 MG/ML, Q2W
     Route: 058
     Dates: start: 20200825

REACTIONS (4)
  - Incorrect dose administered [Unknown]
  - Injection site pain [Unknown]
  - Injection site extravasation [Unknown]
  - Hepatic failure [Unknown]

NARRATIVE: CASE EVENT DATE: 20200922
